FAERS Safety Report 7332840-3 (Version None)
Quarter: 2011Q1

REPORT INFORMATION
  Report Type: 
  Country: None (occurrence: None)
  Receive Date: 20110304
  Receipt Date: 20110224
  Transmission Date: 20110831
  Serious: Yes (Disabling)
  Sender: FDA-Public Use
  Company Number: JP-MERCK-1102USA03413

PATIENT
  Sex: Female

DRUGS (1)
  1. ZETIA [Suspect]
     Indication: HYPERCHOLESTEROLAEMIA
     Route: 048
     Dates: start: 20101001, end: 20101101

REACTIONS (6)
  - HEPATIC FUNCTION ABNORMAL [None]
  - DYSCHEZIA [None]
  - HYPOAESTHESIA [None]
  - MICTURITION DISORDER [None]
  - ILLUSION [None]
  - BLOOD CREATINE PHOSPHOKINASE INCREASED [None]
